FAERS Safety Report 6249182-X (Version None)
Quarter: 2009Q2

REPORT INFORMATION
  Report Type: 
  Country: None (occurrence: None)
  Receive Date: 20090629
  Receipt Date: 20090618
  Transmission Date: 20091009
  Serious: Yes (Hospitalization)
  Sender: FDA-Public Use
  Company Number: DE-ABBOTT-09P-062-0580589-00

PATIENT
  Sex: Male

DRUGS (4)
  1. HUMIRA [Suspect]
     Indication: RHEUMATOID ARTHRITIS
     Route: 058
     Dates: end: 20080201
  2. MTX [Concomitant]
     Indication: RHEUMATOID ARTHRITIS
     Dates: end: 20080201
  3. GLUCOCORTICOIDS [Concomitant]
     Indication: RHEUMATOID ARTHRITIS
  4. ANALGETICS (NOT SPECIFIED) [Concomitant]
     Indication: PAIN

REACTIONS (2)
  - IMPAIRED HEALING [None]
  - POSTOPERATIVE WOUND INFECTION [None]
